FAERS Safety Report 5582098-0 (Version None)
Quarter: 2008Q1

REPORT INFORMATION
  Report Type: 
  Country: None (occurrence: None)
  Receive Date: 20080104
  Receipt Date: 20080102
  Transmission Date: 20080703
  Serious: Yes (Other)
  Sender: FDA-Public Use
  Company Number: HQWYE215231AUG05

PATIENT
  Sex: Male
  Weight: 105.33 kg

DRUGS (15)
  1. RAPAMUNE [Suspect]
     Indication: PROPHYLAXIS AGAINST TRANSPLANT REJECTION
     Dosage: UNKNOWN
     Route: 048
     Dates: start: 20050504, end: 20050801
  2. RAPAMUNE [Suspect]
     Dosage: 2MG/3MG
     Route: 048
     Dates: start: 20050810, end: 20050823
  3. RAPAMUNE [Suspect]
     Route: 048
     Dates: start: 20050824, end: 20050825
  4. RAPAMUNE [Suspect]
     Route: 048
     Dates: start: 20050826
  5. PREDNISONE [Suspect]
     Indication: PROPHYLAXIS AGAINST TRANSPLANT REJECTION
     Route: 048
     Dates: start: 20050504, end: 20050828
  6. PREDNISONE [Suspect]
     Dosage: TAPERED DOSE STARTING AT 22 MG
     Dates: start: 20050829, end: 20050907
  7. BACTRIM [Concomitant]
     Dosage: 400/80 MG EVERY OTHER DAY
     Route: 065
  8. PROCARDIA XL [Concomitant]
     Route: 065
  9. ZENAPAX [Concomitant]
     Indication: PROPHYLAXIS AGAINST TRANSPLANT REJECTION
     Dosage: UNKNOWN
     Route: 065
  10. LANTUS [Concomitant]
     Dosage: 30 UNIT EVERY 1 DAY
     Route: 065
  11. LEVOBUNOLOL HCL [Concomitant]
     Dosage: UNKNOWN
     Route: 065
  12. METOPROLOL TARTRATE [Concomitant]
     Route: 065
  13. LIPITOR [Concomitant]
     Route: 065
  14. CELLCEPT [Suspect]
     Indication: PROPHYLAXIS AGAINST TRANSPLANT REJECTION
     Route: 048
     Dates: start: 20050504
  15. LISINOPRIL [Concomitant]
     Route: 065

REACTIONS (1)
  - TRANSPLANT REJECTION [None]
